FAERS Safety Report 6850974-4 (Version None)
Quarter: 2010Q3

REPORT INFORMATION
  Report Type: 
  Country: None (occurrence: None)
  Receive Date: 20100716
  Receipt Date: 20071024
  Transmission Date: 20110219
  Serious: No
  Sender: FDA-Public Use
  Company Number: US-PFIZER INC-2007091362

PATIENT
  Sex: Female
  Weight: 63.6 kg

DRUGS (10)
  1. CHANTIX [Suspect]
     Indication: SMOKING CESSATION THERAPY
     Dates: start: 20070101
  2. MIRAPEX [Concomitant]
     Indication: RESTLESS LEGS SYNDROME
  3. MOMETASONE FUROATE [Concomitant]
     Route: 055
  4. CITRACAL [Concomitant]
  5. CALCIUM [Concomitant]
  6. VITAMINS [Concomitant]
  7. NEXIUM [Concomitant]
     Indication: GASTROOESOPHAGEAL REFLUX DISEASE
  8. VITAMIN D [Concomitant]
  9. ALLEGRA [Concomitant]
  10. LOVAZA [Concomitant]

REACTIONS (1)
  - NAUSEA [None]
